FAERS Safety Report 10347515 (Version 1)
Quarter: 2014Q3

REPORT INFORMATION
  Report Type: Spontaneous
  Country: US (occurrence: US)
  Receive Date: 20140729
  Receipt Date: 20140729
  Transmission Date: 20150326
  Serious: Yes (Hospitalization, Other)
  Sender: FDA-Public Use
  Company Number: US-JNJFOC-20140713417

PATIENT
  Sex: Male

DRUGS (25)
  1. FELBAMATE. [Suspect]
     Active Substance: FELBAMATE
     Indication: CONVULSION
     Route: 065
  2. VALPROIC ACID. [Suspect]
     Active Substance: VALPROIC ACID
     Indication: CONVULSION
     Route: 065
  3. NEURONTIN [Suspect]
     Active Substance: GABAPENTIN
     Indication: CONVULSION
     Route: 065
  4. LAMICTAL [Suspect]
     Active Substance: LAMOTRIGINE
     Indication: CONVULSION
     Route: 065
  5. ZONEGRAN [Suspect]
     Active Substance: ZONISAMIDE
     Indication: CONVULSION
     Route: 065
  6. LEVETIRACETAM. [Suspect]
     Active Substance: LEVETIRACETAM
     Indication: CONVULSION
     Route: 065
  7. KEPPRA [Suspect]
     Active Substance: LEVETIRACETAM
     Indication: CONVULSION
     Route: 065
  8. MYSOLINE [Suspect]
     Active Substance: PRIMIDONE
     Indication: CONVULSION
     Route: 065
  9. TOPAMAX [Suspect]
     Active Substance: TOPIRAMATE
     Indication: CONVULSION
     Route: 048
  10. DILANTIN [Suspect]
     Active Substance: PHENYTOIN
     Indication: CONVULSION
     Route: 065
  11. GABITRIL [Suspect]
     Active Substance: TIAGABINE HYDROCHLORIDE
     Indication: CONVULSION
     Route: 065
  12. ZONISAMIDE. [Suspect]
     Active Substance: ZONISAMIDE
     Indication: CONVULSION
     Route: 065
  13. DEPAKENE [Suspect]
     Active Substance: VALPROIC ACID
     Indication: CONVULSION
     Route: 065
  14. VALIUM [Suspect]
     Active Substance: DIAZEPAM
     Indication: CONVULSION
     Route: 065
  15. VIMPAT [Suspect]
     Active Substance: LACOSAMIDE
     Indication: CONVULSION
     Route: 065
  16. NEURONTIN [Suspect]
     Active Substance: GABAPENTIN
     Indication: CONVULSION
     Route: 065
  17. CARBAMAZEPINE. [Suspect]
     Active Substance: CARBAMAZEPINE
     Indication: CONVULSION
     Route: 065
  18. TOPIRAMATE. [Suspect]
     Active Substance: TOPIRAMATE
     Indication: CONVULSION
     Route: 065
  19. TEGRETOL [Suspect]
     Active Substance: CARBAMAZEPINE
     Indication: CONVULSION
     Route: 065
  20. PHENOBARBITAL. [Suspect]
     Active Substance: PHENOBARBITAL
     Indication: CONVULSION
     Route: 065
  21. PRIMIDONE. [Suspect]
     Active Substance: PRIMIDONE
     Indication: CONVULSION
     Route: 065
  22. PREGABALIN. [Suspect]
     Active Substance: PREGABALIN
     Indication: CONVULSION
     Route: 065
  23. VIMPAT [Suspect]
     Active Substance: LACOSAMIDE
     Indication: CONVULSION
     Route: 065
  24. DEPAKOTE [Suspect]
     Active Substance: DIVALPROEX SODIUM
     Indication: CONVULSION
     Route: 065
  25. LYRICA [Suspect]
     Active Substance: PREGABALIN
     Indication: CONVULSION
     Route: 065

REACTIONS (11)
  - Spinal compression fracture [Unknown]
  - Road traffic accident [Unknown]
  - Ligament sprain [Unknown]
  - Rib fracture [Unknown]
  - Laceration [Unknown]
  - Fracture [Unknown]
  - Foot fracture [Unknown]
  - Clavicle fracture [Unknown]
  - Joint injury [Unknown]
  - Convulsion [Not Recovered/Not Resolved]
  - Lower limb fracture [Unknown]
